FAERS Safety Report 4304008-6 (Version None)
Quarter: 2004Q1

REPORT INFORMATION
  Report Type: 
  Country: None (occurrence: None)
  Receive Date: 20040223
  Receipt Date: 20031114
  Transmission Date: 20041129
  Serious: No
  Sender: FDA-Public Use
  Company Number: PHEH2003US10533

PATIENT
  Age: 56 Year
  Sex: Female

DRUGS (6)
  1. ZELNORM [Suspect]
     Indication: GASTROINTESTINAL DISORDER
     Dosage: 6 MG, BID, ORAL
     Route: 048
     Dates: start: 20031113
  2. PREMARIN [Concomitant]
  3. TEGRETOL [Concomitant]
  4. TYLENOL W/ CODEINE NO. 3 [Concomitant]
  5. CELEBREX [Concomitant]
  6. CALCIUM [Concomitant]

REACTIONS (2)
  - OEDEMA PERIPHERAL [None]
  - PARAESTHESIA [None]
